FAERS Safety Report 9225282 (Version 1)
Quarter: 2013Q2

REPORT INFORMATION
  Report Type: Report from Study
  Country: BR (occurrence: BR)
  Receive Date: 20130411
  Receipt Date: 20130411
  Transmission Date: 20140414
  Serious: Yes (Hospitalization)
  Sender: FDA-Public Use
  Company Number: BR-ROCHE-1073511

PATIENT
  Sex: Female
  Weight: 59 kg

DRUGS (2)
  1. RITUXIMAB [Suspect]
     Indication: RHEUMATOID ARTHRITIS
     Route: 065
     Dates: start: 201104, end: 201104
  2. ARAVA [Concomitant]
     Route: 065
     Dates: start: 201104

REACTIONS (2)
  - Lumbar hernia [Unknown]
  - Diabetes mellitus [Not Recovered/Not Resolved]
